FAERS Safety Report 8441134 (Version 6)
Quarter: 2012Q4

REPORT INFORMATION
  Report Type: 
  Country: US (occurrence: US)
  Receive Date: 20120305
  Receipt Date: 20121226
  Transmission Date: 20130627
  Serious: Yes (Hospitalization, Other)
  Sender: FDA-Public Use
  Company Number: US-009507513-1203USA00307

PATIENT

DRUGS (5)
  1. FOSAMAX [Suspect]
     Indication: OSTEOPOROSIS
     Dosage: 10 mg, qd
     Route: 048
     Dates: start: 2000, end: 2001
  2. FOSAMAX [Suspect]
     Dosage: 70 mg, qw
     Route: 048
     Dates: start: 2001
  3. OLAY COMPLETE WOMAN^S MULTIVITAMIN 50+ [Concomitant]
     Dosage: 1 DF, qd
     Dates: end: 20120227
  4. FOSAMAX [Suspect]
     Indication: OSTEOPOROSIS
     Dosage: 70 mg, UNK
     Route: 048
  5. ALENDRONATE SODIUM [Suspect]
     Indication: OSTEOPOROSIS
     Dosage: 70 mg, UNK
     Route: 048

REACTIONS (45)
  - Femur fracture [Unknown]
  - Open reduction of fracture [Unknown]
  - Fall [Unknown]
  - Fall [Unknown]
  - Pain [Unknown]
  - Subdural haematoma [Unknown]
  - Cataract operation [Unknown]
  - Head injury [Unknown]
  - Depression [Unknown]
  - Anxiety disorder [Not Recovered/Not Resolved]
  - Ankle fracture [Unknown]
  - Rectal haemorrhage [Unknown]
  - Rectal prolapse [Unknown]
  - Urinary tract infection [Unknown]
  - Abasia [Unknown]
  - Agitation [Recovering/Resolving]
  - Adverse drug reaction [Recovering/Resolving]
  - Aphasia [Unknown]
  - Cognitive disorder [Unknown]
  - Polydipsia [Unknown]
  - Hypertension [Not Recovered/Not Resolved]
  - Bradycardia [Unknown]
  - Neurological symptom [Unknown]
  - Macular degeneration [Unknown]
  - Hormone therapy [Unknown]
  - Constipation [Unknown]
  - Vascular dementia [Not Recovered/Not Resolved]
  - Neurogenic bladder [Unknown]
  - Osteoarthritis [Unknown]
  - Blindness [Unknown]
  - Syncope [Unknown]
  - Cardiac pacemaker insertion [Unknown]
  - Laceration [Unknown]
  - Fall [Unknown]
  - Tachycardia [Unknown]
  - Convulsion [Recovered/Resolved]
  - Urinary tract infection [Unknown]
  - Dermal cyst [Unknown]
  - Uterine prolapse [Unknown]
  - Colon polypectomy [Unknown]
  - Hysterectomy [Unknown]
  - Salpingo-oophorectomy bilateral [Unknown]
  - Retinal tear [Unknown]
  - Atrioventricular block [Unknown]
  - Oedema peripheral [Unknown]
